FAERS Safety Report 6990310-6 (Version None)
Quarter: 2010Q3

REPORT INFORMATION
  Report Type: 
  Country: None (occurrence: None)
  Receive Date: 20100916
  Receipt Date: 20100518
  Transmission Date: 20110219
  Serious: Yes (Other)
  Sender: FDA-Public Use
  Company Number: US-PFIZER INC-2010063232

PATIENT
  Sex: Female
  Weight: 90.703 kg

DRUGS (6)
  1. LYRICA [Suspect]
     Indication: FIBROMYALGIA
     Dosage: 100 MG, 1X/DAY
     Route: 048
     Dates: start: 20080101
  2. CYMBALTA [Concomitant]
     Indication: FIBROMYALGIA
     Dosage: 60 MG, 1X/DAY
     Route: 048
  3. LEVOTHYROXINE SODIUM [Concomitant]
     Indication: AUTOIMMUNE THYROIDITIS
     Dosage: 75 MG, 2X/DAY
     Route: 048
  4. MOBIC [Concomitant]
     Indication: OSTEOARTHRITIS
     Dosage: 15 MG, 1X/DAY
     Route: 048
  5. FLEXERIL [Concomitant]
     Indication: PAIN
     Dosage: UNK
  6. CODEINE [Concomitant]
     Indication: PAIN
     Dosage: UNK

REACTIONS (4)
  - NAUSEA [None]
  - PAIN [None]
  - ROAD TRAFFIC ACCIDENT [None]
  - VERTIGO [None]
